FAERS Safety Report 16225930 (Version 1)
Quarter: 2019Q2

REPORT INFORMATION
  Report Type: Spontaneous
  Country: US (occurrence: US)
  Receive Date: 20190423
  Receipt Date: 20190423
  Transmission Date: 20190711
  Serious: Yes (Other)
  Sender: FDA-Public Use
  Company Number: US-NAPPMUNDI-USA-2002-0001371

PATIENT
  Sex: Male

DRUGS (3)
  1. OXYCODONE HYDROCHLORIDE (SIMILAR TO NDA 22-272) [Suspect]
     Active Substance: OXYCODONE HYDROCHLORIDE
     Indication: PRODUCT USED FOR UNKNOWN INDICATION
     Dosage: UNK MG, SEE TEXT
     Route: 065
  2. AMBIEN [Interacting]
     Active Substance: ZOLPIDEM TARTRATE
     Indication: DRUG ABUSE
     Dosage: UNK MG, UNK
     Route: 048
  3. XANAX [Interacting]
     Active Substance: ALPRAZOLAM
     Indication: DRUG ABUSE
     Dosage: UNK MG, UNK
     Route: 048

REACTIONS (8)
  - Drug dependence [Unknown]
  - Balance disorder [Unknown]
  - Dysarthria [Unknown]
  - Potentiating drug interaction [Unknown]
  - Swelling of eyelid [Unknown]
  - Road traffic accident [Unknown]
  - Impaired driving ability [Unknown]
  - Judgement impaired [Unknown]

NARRATIVE: CASE EVENT DATE: 20080425
